FAERS Safety Report 8259980-9 (Version None)
Quarter: 2012Q1

REPORT INFORMATION
  Report Type: 
  Country: None (occurrence: None)
  Receive Date: 20120327
  Receipt Date: 20080922
  Transmission Date: 20120608
  Serious: Yes (Other)
  Sender: FDA-Public Use
  Company Number: PHEH2008US06769

PATIENT
  Sex: Male

DRUGS (5)
  1. SUNITINIB MALATE [Suspect]
     Indication: METASTATIC NEOPLASM
     Dates: start: 20080101, end: 20080101
  2. GLEEVEC [Suspect]
     Indication: METASTATIC NEOPLASM
     Dosage: 400 MG, QD, ORAL
     Route: 048
     Dates: end: 20060203
  3. GLEEVEC [Suspect]
     Indication: GASTROINTESTINAL STROMAL TUMOUR
     Dosage: 400 MG, QD, ORAL
     Route: 048
     Dates: end: 20060203
  4. GLEEVEC [Suspect]
     Indication: METASTATIC NEOPLASM
     Dosage: 400 MG, QD, ORAL
     Route: 048
     Dates: start: 20080101, end: 20080101
  5. GLEEVEC [Suspect]
     Indication: GASTROINTESTINAL STROMAL TUMOUR
     Dosage: 400 MG, QD, ORAL
     Route: 048
     Dates: start: 20080101, end: 20080101

REACTIONS (7)
  - DRUG RESISTANCE [None]
  - METASTASES TO LIVER [None]
  - RECURRENT CANCER [None]
  - METASTATIC NEOPLASM [None]
  - CYTOREDUCTIVE SURGERY [None]
  - METASTASES TO LARGE INTESTINE [None]
  - INTESTINAL RESECTION [None]
